FAERS Safety Report 6012194-5 (Version None)
Quarter: 2008Q4

REPORT INFORMATION
  Report Type: 
  Country: None (occurrence: None)
  Receive Date: 20081218
  Receipt Date: 20081209
  Transmission Date: 20090506
  Serious: Yes (Hospitalization)
  Sender: FDA-Public Use
  Company Number: FR-PFIZER INC-2008151909

PATIENT

DRUGS (7)
  1. CELEBREX [Suspect]
     Indication: ARTHRITIS
     Route: 048
     Dates: start: 20080528, end: 20080612
  2. PANOS [Suspect]
     Indication: OSTEOARTHRITIS
     Dates: start: 20080528, end: 20080612
  3. PAROXETINE [Concomitant]
     Dosage: UNK
  4. TAHOR [Concomitant]
     Dosage: UNK
  5. HYTACAND [Concomitant]
     Dosage: UNK
  6. AMLOD [Concomitant]
     Dosage: UNK
  7. LAMALINE [Concomitant]
     Dosage: UNK

REACTIONS (1)
  - STEVENS-JOHNSON SYNDROME [None]
